FAERS Safety Report 18057883 (Version 1)
Quarter: 2020Q3

REPORT INFORMATION
  Report Type: Report from Study
  Country: BR (occurrence: BR)
  Receive Date: 20200723
  Receipt Date: 20200723
  Transmission Date: 20201103
  Serious: Yes (Other)
  Sender: FDA-Public Use
  Company Number: BR-UCBSA-2020028156

PATIENT
  Age: 57 Year
  Sex: Female
  Weight: 70 kg

DRUGS (6)
  1. CERTOLIZUMAB PEGOL RA [Suspect]
     Active Substance: CERTOLIZUMAB PEGOL
     Indication: RHEUMATOID ARTHRITIS
     Dosage: 400 MILLIGRAM, EV 4 WEEKS
     Route: 058
  2. PURAN [Concomitant]
     Active Substance: LEVOTHYROXINE SODIUM
     Indication: THYROID DISORDER
     Dosage: 1 DOSAGE FORM, ONCE DAILY (QD)
     Route: 048
  3. CLORANA [Concomitant]
     Active Substance: HYDROCHLOROTHIAZIDE
     Indication: HYPERTENSION
     Dosage: 1 DOSAGE FORM, ONCE DAILY (QD)
     Route: 048
  4. ALENIA [BUDESONIDE;FORMOTEROL FUMARATE] [Concomitant]
     Active Substance: BUDESONIDE\FORMOTEROL FUMARATE
     Indication: ASTHMA
     Dosage: 1 DOSAGE FORM, ONCE DAILY (QD)
     Route: 048
  5. TECNOMET [METHOTREXATE] [Concomitant]
     Active Substance: METHOTREXATE
     Indication: RHEUMATOID ARTHRITIS
     Dosage: UNK
     Route: 048
  6. CORUS [LOSARTAN POTASSIUM] [Concomitant]
     Indication: HYPERTENSION
     Dosage: 1 DOSAGE FORM, ONCE DAILY (QD)
     Route: 048

REACTIONS (2)
  - COVID-19 [Recovering/Resolving]
  - Patient isolation [Unknown]

NARRATIVE: CASE EVENT DATE: 20200710
